FAERS Safety Report 13581254 (Version 1)
Quarter: 2017Q2

REPORT INFORMATION
  Report Type: Spontaneous
  Country: US (occurrence: US)
  Receive Date: 20170525
  Receipt Date: 20170525
  Transmission Date: 20170830
  Serious: Yes (Disabling)
  Sender: FDA-Public Use
  Company Number: None

PATIENT
  Age: 43 Year
  Sex: Female
  Weight: 117 kg

DRUGS (12)
  1. MS CONTIN [Concomitant]
     Active Substance: MORPHINE SULFATE
  2. METFORMIN [Concomitant]
     Active Substance: METFORMIN HYDROCHLORIDE
  3. ABILIFY [Concomitant]
     Active Substance: ARIPIPRAZOLE
  4. IBUPROFEN. [Concomitant]
     Active Substance: IBUPROFEN
  5. NEURONTIN [Concomitant]
     Active Substance: GABAPENTIN
  6. TUMS [Concomitant]
     Active Substance: CALCIUM CARBONATE
  7. PROVIGIL [Concomitant]
     Active Substance: MODAFINIL
  8. LEXAPRO [Concomitant]
     Active Substance: ESCITALOPRAM OXALATE
  9. SINGULAIR [Concomitant]
     Active Substance: MONTELUKAST SODIUM
  10. VFEND [Suspect]
     Active Substance: VORICONAZOLE
     Indication: SINUSITIS FUNGAL
     Route: 048
     Dates: start: 20170323, end: 20170403
  11. PHENERGAN [Concomitant]
     Active Substance: PROMETHAZINE HYDROCHLORIDE
  12. VITAMIN B12 [Concomitant]
     Active Substance: CYANOCOBALAMIN

REACTIONS (4)
  - Alopecia [None]
  - Hypomenorrhoea [None]
  - Depression [None]
  - Social problem [None]

NARRATIVE: CASE EVENT DATE: 20170323
